FAERS Safety Report 4567947-7 (Version None)
Quarter: 2005Q1

REPORT INFORMATION
  Report Type: 
  Country: None (occurrence: None)
  Receive Date: 20050202
  Receipt Date: 20040916
  Transmission Date: 20050727
  Serious: No
  Sender: FDA-Public Use
  Company Number: US-GLAXOSMITHKLINE-A0526011A

PATIENT
  Sex: Female

DRUGS (2)
  1. NAVELBINE [Suspect]
     Route: 042
     Dates: start: 20040907
  2. LORTAB [Concomitant]

REACTIONS (2)
  - NEUROPATHY PERIPHERAL [None]
  - PAIN [None]
